FAERS Safety Report 16357580 (Version 2)
Quarter: 2019Q2

REPORT INFORMATION
  Report Type: Spontaneous
  Country: CN (occurrence: CN)
  Receive Date: 20190527
  Receipt Date: 20190613
  Transmission Date: 20190711
  Serious: Yes (Death, Life-Threatening, Hospitalization, Other)
  Sender: FDA-Public Use
  Company Number: CN-ACCORD-129381

PATIENT
  Age: 53 Year
  Sex: Female

DRUGS (7)
  1. OXALIPLATIN. [Suspect]
     Active Substance: OXALIPLATIN
     Indication: FOLLICULAR DENDRITIC CELL SARCOMA
     Dosage: ON DAY 2
  2. DOXORUBICIN [Suspect]
     Active Substance: DOXORUBICIN
     Indication: FOLLICULAR DENDRITIC CELL SARCOMA
  3. BLEOMYCIN [Suspect]
     Active Substance: BLEOMYCIN SULFATE
     Indication: FOLLICULAR DENDRITIC CELL SARCOMA
  4. DACARBAZINE. [Suspect]
     Active Substance: DACARBAZINE
     Indication: FOLLICULAR DENDRITIC CELL SARCOMA
  5. IMIPENEM [Concomitant]
     Active Substance: IMIPENEM
     Indication: BACTERIAL INFECTION
  6. IFOSFAMIDE. [Suspect]
     Active Substance: IFOSFAMIDE
     Indication: FOLLICULAR DENDRITIC CELL SARCOMA
     Dosage: 1.2G/M2 ON DAYS 2 TO 4
  7. VINBLASTINE [Suspect]
     Active Substance: VINBLASTINE
     Indication: FOLLICULAR DENDRITIC CELL SARCOMA

REACTIONS (1)
  - Hepatic failure [Fatal]
